FAERS Safety Report 9138916 (Version 1)
Quarter: 2013Q1

REPORT INFORMATION
  Report Type: Spontaneous
  Country: US (occurrence: US)
  Receive Date: 20130305
  Receipt Date: 20130305
  Transmission Date: 20140127
  Serious: Yes (Other)
  Sender: FDA-Public Use
  Company Number: US-BRISTOL-MYERS SQUIBB COMPANY-17413097

PATIENT
  Age: 69 Year
  Sex: Male
  Weight: 93.9 kg

DRUGS (3)
  1. HYDREA [Suspect]
  2. JAKAFI [Suspect]
     Indication: SPLENOMEGALY
     Dosage: THERAPY DT:04MAR2012-ONG,RESTATRED:03APR12?EXP ADTE:20MAY2013
     Route: 048
     Dates: start: 20111223, end: 201203
  3. PROZAC [Suspect]
     Dosage: CAPS

REACTIONS (3)
  - Ligament rupture [Recovering/Resolving]
  - Balance disorder [Recovering/Resolving]
  - Fatigue [Recovering/Resolving]
